FAERS Safety Report 5710115-3 (Version None)
Quarter: 2008Q2

REPORT INFORMATION
  Report Type: 
  Country: None (occurrence: None)
  Receive Date: 20080418
  Receipt Date: 20071029
  Transmission Date: 20081010
  Serious: No
  Sender: FDA-Public Use
  Company Number: US-ASTRAZENECA-2007UW25098

PATIENT
  Age: 54 Year
  Sex: Female
  Weight: 108.9 kg

DRUGS (4)
  1. METOPROLOL SUCCINATE [Suspect]
     Indication: HYPERTENSION
     Route: 048
  2. TOPAMAX [Concomitant]
  3. METOPROLOL SUCCINATE [Concomitant]
  4. ALLEGRIA [Concomitant]

REACTIONS (4)
  - DISTURBANCE IN ATTENTION [None]
  - ERYTHEMA [None]
  - FLUSHING [None]
  - RASH [None]
